FAERS Safety Report 22086341 (Version 1)
Quarter: 2023Q1

REPORT INFORMATION
  Report Type: Spontaneous
  Country: PL (occurrence: PL)
  Receive Date: 20230310
  Receipt Date: 20230310
  Transmission Date: 20230417
  Serious: Yes (Other)
  Sender: FDA-Public Use
  Company Number: PL-009507513-2303POL001381

PATIENT
  Age: 60 Year
  Sex: Male

DRUGS (2)
  1. PEMBROLIZUMAB [Suspect]
     Active Substance: PEMBROLIZUMAB
     Indication: Malignant melanoma
     Dosage: 1. CYCLE
     Dates: start: 20210421, end: 20210421
  2. PEMBROLIZUMAB [Suspect]
     Active Substance: PEMBROLIZUMAB
     Dosage: 2. CYCLE
     Dates: start: 20210526, end: 20210526

REACTIONS (5)
  - Hepatotoxicity [Recovered/Resolved]
  - Cardiotoxicity [Recovering/Resolving]
  - Parotidectomy [Unknown]
  - Skin neoplasm excision [Unknown]
  - Inappropriate schedule of product administration [Unknown]

NARRATIVE: CASE EVENT DATE: 20210101
